FAERS Safety Report 5340004-8 (Version None)
Quarter: 2007Q2

REPORT INFORMATION
  Report Type: 
  Country: None (occurrence: None)
  Receive Date: 20070405
  Receipt Date: 20061101
  Transmission Date: 20071010
  Serious: No
  Sender: FDA-Public Use
  Company Number: US200611000872

PATIENT
  Age: 83 Year
  Sex: Female

DRUGS (2)
  1. CYMBALTA [Suspect]
     Dosage: SEE IMAGE
     Route: 048
     Dates: start: 20060701, end: 20060901
  2. CYMBALTA [Suspect]
     Dosage: SEE IMAGE
     Route: 048
     Dates: start: 20060901, end: 20061015

REACTIONS (1)
  - BLOOD PRESSURE INCREASED [None]
